FAERS Safety Report 16108599 (Version 1)
Quarter: 2019Q1

REPORT INFORMATION
  Report Type: Report from Study
  Country: FR (occurrence: FR)
  Receive Date: 20190323
  Receipt Date: 20190323
  Transmission Date: 20190418
  Serious: Yes (Other)
  Sender: FDA-Public Use
  Company Number: FR-ACCORD-114202

PATIENT
  Age: 28 Year
  Sex: Male

DRUGS (2)
  1. METHOTREXATE. [Suspect]
     Active Substance: METHOTREXATE
     Indication: PSORIASIS
     Dosage: TEST DOSE AT THE FIRST ADMINISTRATION
  2. FOLIC ACID. [Concomitant]
     Active Substance: FOLIC ACID
     Indication: PSORIASIS
     Dosage: 5 OR 10 MG 48 H AFTER THE METHOTREXATE DOSE

REACTIONS (2)
  - Syncope [Unknown]
  - Loss of consciousness [Unknown]
